FAERS Safety Report 16393250 (Version 1)
Quarter: 2019Q2

REPORT INFORMATION
  Report Type: Spontaneous
  Country: CA (occurrence: CA)
  Receive Date: 20190605
  Receipt Date: 20190605
  Transmission Date: 20190711
  Serious: Yes (Other)
  Sender: FDA-Public Use
  Company Number: CA-SA-2019SA151177

PATIENT
  Sex: Female

DRUGS (10)
  1. CIMZIA [Suspect]
     Active Substance: CERTOLIZUMAB PEGOL
     Route: 058
  2. ORENCIA [Suspect]
     Active Substance: ABATACEPT
  3. CELECOXIB. [Suspect]
     Active Substance: CELECOXIB
     Indication: ARTHRITIS
     Dosage: UNK
  4. ENBREL [Suspect]
     Active Substance: ETANERCEPT
  5. ARAVA [Suspect]
     Active Substance: LEFLUNOMIDE
  6. SIMPONI [Suspect]
     Active Substance: GOLIMUMAB
     Route: 058
  7. PROLIA [Concomitant]
     Active Substance: DENOSUMAB
     Dosage: UNK
     Route: 058
  8. ACTONEL [Suspect]
     Active Substance: RISEDRONATE SODIUM
  9. PREDNISONE. [Suspect]
     Active Substance: PREDNISONE
  10. ACTEMRA [Suspect]
     Active Substance: TOCILIZUMAB

REACTIONS (5)
  - Bedridden [Unknown]
  - Immobile [Unknown]
  - Osteoporosis [Unknown]
  - Drug ineffective [Unknown]
  - Fracture [Unknown]
